FAERS Safety Report 9554162 (Version 1)
Quarter: 2013Q3

REPORT INFORMATION
  Report Type: Spontaneous
  Country: JO (occurrence: JO)
  Receive Date: 20130925
  Receipt Date: 20130925
  Transmission Date: 20140515
  Serious: Yes (Hospitalization)
  Sender: FDA-Public Use
  Company Number: JO-ROXANE LABORATORIES, INC.-2013-RO-01567RO

PATIENT
  Age: 12 Year
  Sex: Male

DRUGS (8)
  1. MERCAPTOPURINE [Suspect]
     Indication: NON-HODGKIN^S LYMPHOMA
  2. CYCLOPHOSPHAMIDE TABLETS USP [Suspect]
     Indication: NON-HODGKIN^S LYMPHOMA
  3. METHOTREXATE [Suspect]
     Indication: NON-HODGKIN^S LYMPHOMA
  4. L-ASPARAGINASE [Suspect]
     Indication: NON-HODGKIN^S LYMPHOMA
  5. PREDNISOLONE [Suspect]
     Indication: NON-HODGKIN^S LYMPHOMA
  6. CYTARABINE [Suspect]
     Indication: NON-HODGKIN^S LYMPHOMA
  7. VINCRISTINE [Concomitant]
     Indication: NON-HODGKIN^S LYMPHOMA
  8. DAUNORUBICIN [Concomitant]
     Indication: NON-HODGKIN^S LYMPHOMA

REACTIONS (1)
  - Pancreatitis relapsing [Recovered/Resolved]
